FAERS Safety Report 7347443-4 (Version None)
Quarter: 2011Q1

REPORT INFORMATION
  Report Type: 
  Country: None (occurrence: None)
  Receive Date: 20110311
  Receipt Date: 20110303
  Transmission Date: 20110831
  Serious: Yes (Other)
  Sender: FDA-Public Use
  Company Number: TH-PERRIGO-11TH001983

PATIENT
  Age: 8 Month

DRUGS (1)
  1. CLOBETASOL PROPIONATE RX 0.05% 2P1 [Suspect]
     Indication: DERMATITIS DIAPER
     Dosage: UNK
     Route: 061

REACTIONS (3)
  - CUSHING'S SYNDROME [None]
  - INCORRECT DRUG ADMINISTRATION DURATION [None]
  - OFF LABEL USE [None]
